FAERS Safety Report 9230113 (Version 1)
Quarter: 2013Q2

REPORT INFORMATION
  Report Type: Spontaneous
  Country: US (occurrence: None)
  Receive Date: 20130412
  Receipt Date: 20130412
  Transmission Date: 20140414
  Serious: Yes (Other)
  Sender: FDA-Public Use
  Company Number: None

PATIENT
  Age: 51 Year
  Sex: Female
  Weight: 74.84 kg

DRUGS (1)
  1. CYMBALTA [Suspect]
     Indication: NEURALGIA

REACTIONS (7)
  - Apparent death [None]
  - Feeling abnormal [None]
  - Migraine [None]
  - Nausea [None]
  - Anxiety [None]
  - Nervous system disorder [None]
  - Drug withdrawal syndrome [None]
